FAERS Safety Report 9196205 (Version 1)
Quarter: 2013Q1

REPORT INFORMATION
  Report Type: Spontaneous
  Country: US (occurrence: None)
  Receive Date: 20120709
  Receipt Date: 20120709
  Transmission Date: 20140127
  Serious: No
  Sender: FDA-Public Use
  Company Number: 2012HGS-003642

PATIENT
  Age: 58 Year
  Sex: Female
  Weight: 90.72 kg

DRUGS (23)
  1. BENLYSTA [Suspect]
     Indication: SYSTEMIC LUPUS ERYTHEMATOSUS
     Dosage: 1IN 28 INTRAVENOUS DRIP
     Dates: start: 20120503
  2. METHOTREXATE (METHOTREXATE SODIUM) (METHOTREXATE SODIUM) [Concomitant]
  3. PREDNISONE (PREDNISONE) (PREDNISONE) [Concomitant]
  4. PALQUENIL (HYDROCHLOROQUINE SULFATE) (HYDROCHLOROQUINE SULFATE) [Concomitant]
  5. ADVAIR (SERTIDE) (FLUTICASONE PROPRIONATE, SALMETEROL XINAFOATE) [Concomitant]
  6. ALBUTEROL INHALER (SALBUTAMOL) (SALBUTAMOL) [Concomitant]
  7. ASPIRIN (ACETYLSALICYLIC ACID) (ACETYLSALICYLIC ACID) [Concomitant]
  8. FLONASE (FLUTICASONE PROPRIONATE) (FLUTICASONE PROPRIONATE) [Concomitant]
  9. FOLIC ACID (FOLIC ACID) (FOLIC ACID) [Concomitant]
  10. FUROSEMIDE [Concomitant]
  11. LAMOTRIGINE (LAMOTRIGINE) (LAMOTRIGINE) [Concomitant]
  12. LEVOTHYROXINE (LEVOTHYROXINE SODIUM) (LEVOTHYROXINE SODIUM) [Concomitant]
  13. LEXAPRO (ESCITALOPRAM OXALATE) (ESCITALOPRAM OXALATE) (ESCITALOPRAM OXALATE) [Concomitant]
  14. LISINOPRIL (LISINOPRIL DIHYDRATE)(LISINOPRIL DIHYDRATE) [Concomitant]
  15. NAPROSYN (NAPROXEN SODIUM ) (NAPROXEN SODIUM) [Concomitant]
  16. NITROSTAT (GLYCERYL TRINITRATE) (GLYCERYL TRINITRATE) [Concomitant]
  17. OMEPRAZOLE (OMEPRAZOLE) (OMEPRAZOLE) [Concomitant]
  18. TEMAZEPAM (TEMAZEPAM) (TEMAZEPAM) [Concomitant]
  19. RESTASIS (CICLOSPORIN) (CICLOSPORIN) [Concomitant]
  20. POTASIUM CHLORIDE (POTASSIUM CHLORIDE) (POTASSIUM CHLORIDE) [Concomitant]
  21. TRIAMZINOLONE CREAM AND GEL ( TRIAMCINOLONE) (TRIAMCINOLONE) [Concomitant]
  22. TYLENOL (PARACETAMOL) (PARACETAMOL) [Concomitant]
  23. CALCIUM/MAGNESIUM/ZINC (CALCIUM MAGNESIUM ZINC) (CALCIUM, MAGNESIUM, ZINC) [Concomitant]

REACTIONS (5)
  - Hot flush [None]
  - Chills [None]
  - Somnolence [None]
  - Throat irritation [None]
  - Headache [None]
